FAERS Safety Report 19282394 (Version 2)
Quarter: 2021Q2

REPORT INFORMATION
  Report Type: Report from Study
  Country: DO (occurrence: DO)
  Receive Date: 20210521
  Receipt Date: 20210531
  Transmission Date: 20210717
  Serious: Yes (Other)
  Sender: FDA-Public Use
  Company Number: NVSC2020DO076713

PATIENT
  Age: 50 Year
  Sex: Female

DRUGS (6)
  1. GILENYA [Suspect]
     Active Substance: FINGOLIMOD HYDROCHLORIDE
     Indication: MULTIPLE SCLEROSIS
     Dosage: 0.5 MG, QD
     Route: 048
  2. GILENYA [Suspect]
     Active Substance: FINGOLIMOD HYDROCHLORIDE
     Dosage: 0.5 MG, QD
     Route: 048
     Dates: start: 20210517
  3. YOUPLUS VITAMIN C [Concomitant]
     Active Substance: ASCORBIC ACID
     Indication: PRODUCT USED FOR UNKNOWN INDICATION
     Dosage: UNK
     Route: 065
  4. GILENYA [Suspect]
     Active Substance: FINGOLIMOD HYDROCHLORIDE
     Indication: RELAPSING-REMITTING MULTIPLE SCLEROSIS
     Dosage: 0.5 MG, QD
     Route: 048
     Dates: start: 20200311
  5. VITAMIN D [Concomitant]
     Active Substance: VITAMIN D NOS
     Indication: PRODUCT USED FOR UNKNOWN INDICATION
     Dosage: UNK
     Route: 065
  6. PREGABALIN. [Concomitant]
     Active Substance: PREGABALIN
     Indication: FEELING OF RELAXATION
     Dosage: 150 MG,150 MG, IN THE DAY SHE TOOK 1/4
     Route: 065

REACTIONS (16)
  - Lymphopenia [Recovered/Resolved]
  - Anxiety [Unknown]
  - Feeling abnormal [Unknown]
  - Heart rate decreased [Unknown]
  - Distractibility [Unknown]
  - Memory impairment [Unknown]
  - Hepatomegaly [Unknown]
  - Taste disorder [Unknown]
  - Headache [Recovering/Resolving]
  - Alopecia [Unknown]
  - Dysgeusia [Unknown]
  - Hypertension [Unknown]
  - Muscle spasms [Unknown]
  - Gait disturbance [Unknown]
  - Lymphocyte count increased [Unknown]
  - Pharmacophobia [Unknown]

NARRATIVE: CASE EVENT DATE: 20200311
